FAERS Safety Report 5597116-3 (Version None)
Quarter: 2008Q1

REPORT INFORMATION
  Report Type: 
  Country: None (occurrence: None)
  Receive Date: 20080121
  Receipt Date: 20080114
  Transmission Date: 20080703
  Serious: Yes (Other)
  Sender: FDA-Public Use
  Company Number: PHEH2008US00840

PATIENT
  Age: 57 Year
  Sex: Female
  Weight: 60.317 kg

DRUGS (7)
  1. ZOMETA [Suspect]
     Indication: OSTEOPOROSIS
     Dosage: 4MG, ONE TIME
     Dates: start: 20071228, end: 20071228
  2. PULMICORT [Concomitant]
     Indication: ASTHMA
     Dosage: UNK, QD
  3. PRILOSEC [Concomitant]
     Indication: ABDOMINAL PAIN
     Dosage: UNK, BID
  4. CITRACAL [Concomitant]
  5. FOLIC ACID [Concomitant]
  6. PROMETRIUM [Concomitant]
  7. VIVELLE-DOT [Concomitant]
     Dosage: 0.032 MG, UNK

REACTIONS (7)
  - BODY TEMPERATURE INCREASED [None]
  - CHEST DISCOMFORT [None]
  - CHILLS [None]
  - DEAFNESS [None]
  - DEAFNESS TRANSITORY [None]
  - DYSPNOEA [None]
  - MUSCULOSKELETAL CHEST PAIN [None]
